FAERS Safety Report 7896891-2 (Version None)
Quarter: 2011Q4

REPORT INFORMATION
  Report Type: 
  Country: None (occurrence: None)
  Receive Date: 20111107
  Receipt Date: 20111028
  Transmission Date: 20120403
  Serious: Yes (Hospitalization, Other)
  Sender: FDA-Public Use
  Company Number: IT-BAYER-201016647GPV

PATIENT
  Age: 71 Year
  Sex: Male
  Weight: 73 kg

DRUGS (3)
  1. SORAFENIB (RAF KINASE INHIBITOR) [Suspect]
     Indication: HEPATIC NEOPLASM MALIGNANT NON-RESECTABLE
     Route: 048
     Dates: start: 20100212
  2. DOXORUBICIN HCL [Suspect]
     Indication: HEPATIC NEOPLASM MALIGNANT
  3. LANSOPRAZOLE [Concomitant]
     Indication: GASTRITIS
     Dosage: 30 MG (DAILY DOSE), , ORAL
     Route: 048
     Dates: start: 20091228

REACTIONS (2)
  - SPLENIC INFARCTION [None]
  - PYREXIA [None]
